FAERS Safety Report 18719299 (Version 1)
Quarter: 2021Q1

REPORT INFORMATION
  Report Type: Spontaneous
  Country: FR (occurrence: FR)
  Receive Date: 20210108
  Receipt Date: 20210108
  Transmission Date: 20210419
  Serious: Yes (Hospitalization)
  Sender: FDA-Public Use
  Company Number: FR-TEVA-2021-FR-1866346

PATIENT
  Age: 80 Year
  Sex: Male
  Weight: 85 kg

DRUGS (11)
  1. AMLODIPINE [Concomitant]
     Active Substance: AMLODIPINE BESYLATE
     Dosage: 5 MG
     Route: 048
  2. METFORMINE [Suspect]
     Active Substance: METFORMIN HYDROCHLORIDE
     Indication: TYPE 2 DIABETES MELLITUS
     Dosage: 1500 MG
     Route: 048
     Dates: end: 20200425
  3. TOUJEO [Concomitant]
     Active Substance: INSULIN GLARGINE
     Dosage: 56 IU
     Route: 058
  4. LYRICA [Concomitant]
     Active Substance: PREGABALIN
     Dosage: 3 DF
     Route: 048
  5. CRESTOR [Concomitant]
     Active Substance: ROSUVASTATIN CALCIUM
     Dosage: 1 DF
     Route: 048
  6. NOVORAPID [Concomitant]
     Active Substance: INSULIN ASPART
     Dosage: 66 IU
     Route: 058
  7. KARDEGIC [Concomitant]
     Active Substance: ASPIRIN DL-LYSINE
     Dosage: 1 DF
     Route: 048
  8. PRAXILENE 200 MG, COMPRIME PELLICULE [Concomitant]
     Active Substance: NAFRONYL OXALATE
     Dosage: 3 DF
     Route: 048
  9. VICTOZA [Concomitant]
     Active Substance: LIRAGLUTIDE
     Dosage: 1.2 MG
     Route: 030
  10. COTAREG 160 MG/12,5 MG, COMPRIME PELLICULE [Concomitant]
     Active Substance: HYDROCHLOROTHIAZIDE\VALSARTAN
     Dosage: 1 DF
     Route: 048
  11. BISOPROLOL (FUMARATE ACIDE DE) [Concomitant]
     Active Substance: BISOPROLOL FUMARATE
     Dosage: 1.25 MG
     Route: 048

REACTIONS (2)
  - Hyperkalaemia [Recovered/Resolved]
  - Lactic acidosis [Recovered/Resolved]

NARRATIVE: CASE EVENT DATE: 20200424
